FAERS Safety Report 8710313 (Version 8)
Quarter: 2013Q2

REPORT INFORMATION
  Report Type: Spontaneous
  Country: US (occurrence: US)
  Receive Date: 20120807
  Receipt Date: 20130610
  Transmission Date: 20140414
  Serious: Yes (Disabling, Other)
  Sender: FDA-Public Use
  Company Number: US-009507513-1208USA000260

PATIENT
  Sex: Female

DRUGS (8)
  1. PEG-INTRON [Suspect]
     Indication: HEPATITIS C
     Dosage: 80MCG/0.5ML, QW (REDIPEN)
     Dates: start: 20120629, end: 20121229
  2. REBETOL [Suspect]
     Indication: HEPATITIS C
     Dosage: 200 MG, BID
     Dates: start: 20120629, end: 20121229
  3. PAXIL [Concomitant]
  4. REMERON [Concomitant]
  5. TEMAZEPAM [Concomitant]
  6. XANAX [Concomitant]
  7. ERYTHROMYCIN [Concomitant]
     Dosage: UNK
  8. HYDROCODONE [Concomitant]

REACTIONS (37)
  - Hepatic pain [Unknown]
  - Breast pain [Unknown]
  - Back pain [Unknown]
  - Influenza like illness [Unknown]
  - Procedural pain [Unknown]
  - Arthralgia [Unknown]
  - Panic reaction [Unknown]
  - Pain [Unknown]
  - Back pain [Unknown]
  - Musculoskeletal disorder [Unknown]
  - Pain [Unknown]
  - Headache [Unknown]
  - Insomnia [Unknown]
  - Liver disorder [Unknown]
  - Gallbladder disorder [Unknown]
  - Musculoskeletal disorder [Unknown]
  - Influenza [Unknown]
  - Connective tissue disorder [Unknown]
  - Pneumonia [Recovering/Resolving]
  - Malaise [Recovering/Resolving]
  - Fatigue [Recovering/Resolving]
  - Pain [Recovering/Resolving]
  - Migraine [Unknown]
  - Pain [Unknown]
  - Hyperhidrosis [Unknown]
  - Fatigue [Unknown]
  - Musculoskeletal disorder [Unknown]
  - Abdominal pain [Unknown]
  - Connective tissue disorder [Unknown]
  - Anxiety [Unknown]
  - Dyspnoea [Unknown]
  - Visual acuity reduced [Unknown]
  - Dizziness [Unknown]
  - Insomnia [Unknown]
  - Liver disorder [Recovered/Resolved]
  - Gallbladder disorder [Recovered/Resolved]
  - Connective tissue disorder [Unknown]
